FAERS Safety Report 8619830-5 (Version None)
Quarter: 2012Q3

REPORT INFORMATION
  Report Type: 
  Country: None (occurrence: None)
  Receive Date: 20120824
  Receipt Date: 20120815
  Transmission Date: 20120928
  Serious: Yes (Other)
  Sender: FDA-Public Use
  Company Number: CH-TEVA-354292ISR

PATIENT
  Age: 83 Year
  Sex: Female
  Weight: 57 kg

DRUGS (7)
  1. ASPIRIN [Concomitant]
     Dosage: 100 MILLIGRAM DAILY;
     Route: 048
  2. REMERON [Concomitant]
     Route: 048
  3. COLOSAN [Concomitant]
     Route: 048
  4. AMOXICILLIN AND CLAVULANATE POTASSIUM [Suspect]
     Dosage: 2250 MILLIGRAM DAILY;
     Route: 048
     Dates: start: 20090101, end: 20090203
  5. LACDIGEST [Concomitant]
     Route: 048
  6. VALIUM [Concomitant]
     Dosage: 3.5 MILLIGRAM DAILY;
     Route: 048
  7. PARAGAR [Concomitant]
     Route: 048

REACTIONS (2)
  - TONGUE DISORDER [None]
  - DYSGEUSIA [None]
